FAERS Safety Report 19994498 (Version 1)
Quarter: 2021Q4

REPORT INFORMATION
  Report Type: Spontaneous
  Country: US (occurrence: US)
  Receive Date: 20211026
  Receipt Date: 20211026
  Transmission Date: 20220303
  Serious: No
  Sender: FDA-Public Use
  Company Number: US-BAYER-2021A237263

PATIENT
  Age: 87 Year

DRUGS (1)
  1. MIRALAX [Suspect]
     Active Substance: POLYETHYLENE GLYCOL 3350
     Indication: Gastrointestinal disorder
     Dosage: UNK, BID
     Route: 048

REACTIONS (4)
  - Product prescribing issue [Unknown]
  - Extra dose administered [Unknown]
  - Peripheral swelling [Unknown]
  - Limb discomfort [Unknown]
